FAERS Safety Report 21719247 (Version 1)
Quarter: 2022Q4

REPORT INFORMATION
  Report Type: Report from Study
  Country: US (occurrence: US)
  Receive Date: 20221213
  Receipt Date: 20221213
  Transmission Date: 20230112
  Serious: Yes (Other)
  Sender: FDA-Public Use
  Company Number: US-ABBVIE-4232162

PATIENT
  Sex: Female

DRUGS (1)
  1. SKYRIZI [Suspect]
     Active Substance: RISANKIZUMAB-RZAA
     Indication: Psoriasis
     Route: 058

REACTIONS (5)
  - Hip surgery [Recovering/Resolving]
  - Psoriasis [Recovered/Resolved]
  - Therapeutic response shortened [Unknown]
  - Sensitive skin [Not Recovered/Not Resolved]
  - Psoriasis [Not Recovered/Not Resolved]
